FAERS Safety Report 5272645-0 (Version None)
Quarter: 2007Q1

REPORT INFORMATION
  Report Type: 
  Country: None (occurrence: None)
  Receive Date: 20070322
  Receipt Date: 20070313
  Transmission Date: 20070707
  Serious: Yes (Hospitalization)
  Sender: FDA-Public Use
  Company Number: PHHO2006CN08390

PATIENT
  Age: 32 Year
  Sex: Male

DRUGS (1)
  1. TELBIVUDINE VS LAMIVUDINE [Suspect]
     Indication: HEPATITIS B
     Dosage: DOUBLE BLIND
     Route: 048
     Dates: start: 20040820, end: 20060601

REACTIONS (9)
  - ALANINE AMINOTRANSFERASE INCREASED [None]
  - ASPARTATE AMINOTRANSFERASE INCREASED [None]
  - BLOOD BILIRUBIN INCREASED [None]
  - CONDITION AGGRAVATED [None]
  - DECREASED APPETITE [None]
  - DUODENAL ULCER [None]
  - ERUCTATION [None]
  - HEPATITIS B [None]
  - MALAISE [None]
